FAERS Safety Report 24718789 (Version 2)
Quarter: 2024Q4

REPORT INFORMATION
  Report Type: Report from Study
  Country: US (occurrence: US)
  Receive Date: 20241210
  Receipt Date: 20241212
  Transmission Date: 20250115
  Serious: Yes (Other)
  Sender: NOVARTIS
  Company Number: US-002147023-NVSC2024US234299

PATIENT
  Age: 82 Year
  Sex: Female

DRUGS (3)
  1. KISQALI [Suspect]
     Active Substance: RIBOCICLIB
     Indication: Product used for unknown indication
     Dosage: 600 MG/KG, TID (OFF LABEL USE)
     Route: 048
  2. KISQALI [Suspect]
     Active Substance: RIBOCICLIB
     Dosage: 200 MG, QD (200 MG)
     Route: 048
     Dates: start: 20240418, end: 20241206
  3. KISQALI [Suspect]
     Active Substance: RIBOCICLIB
     Dosage: 400 MG (200 MG)
     Route: 065

REACTIONS (2)
  - Seizure [Recovered/Resolved]
  - Off label use [Unknown]

NARRATIVE: CASE EVENT DATE: 20241115
